FAERS Safety Report 11815023 (Version 2)
Quarter: 2017Q2

REPORT INFORMATION
  Report Type: Spontaneous
  Country: US (occurrence: US)
  Receive Date: 20151209
  Receipt Date: 20170517
  Transmission Date: 20170829
  Serious: No
  Sender: FDA-Public Use
  Company Number: US-SA-2015SA153216

PATIENT

DRUGS (2)
  1. SOLOSTAR [Suspect]
     Active Substance: DEVICE
     Indication: DIABETES MELLITUS
  2. TOUJEO [Suspect]
     Active Substance: INSULIN GLARGINE
     Indication: DIABETES MELLITUS
     Route: 065

REACTIONS (1)
  - Drug administered in wrong device [Unknown]
